FAERS Safety Report 4305100-2 (Version None)
Quarter: 2004Q1

REPORT INFORMATION
  Report Type: 
  Country: None (occurrence: None)
  Receive Date: 20040224
  Receipt Date: 20040224
  Transmission Date: 20041129
  Serious: Yes (Other)
  Sender: FDA-Public Use
  Company Number: None

PATIENT
  Age: 77 Year
  Sex: Male
  Weight: 84.4 kg

DRUGS (1)
  1. TERAZOSIN HCL [Suspect]

REACTIONS (1)
  - DIZZINESS [None]
